FAERS Safety Report 11145486 (Version 1)
Quarter: 2015Q2

REPORT INFORMATION
  Report Type: Not Available
  Country: US (occurrence: US)
  Receive Date: 20150526
  Receipt Date: 20150526
  Transmission Date: 20150821
  Serious: No
  Sender: FDA-Public Use
  Company Number: US-LUPIN PHARMACEUTICALS INC.-E2B_00003463

PATIENT
  Age: 60 Year
  Sex: Male
  Weight: 83.99 kg

DRUGS (2)
  1. ZOLPIDEM TARTRATE EXTENDED-RELEASE [Suspect]
     Active Substance: ZOLPIDEM TARTRATE
     Dates: end: 201503
  2. ZOLPIDEM TARTRATE EXTENDED-RELEASE [Suspect]
     Active Substance: ZOLPIDEM TARTRATE
     Indication: SLEEP DISORDER
     Dates: start: 201502

REACTIONS (4)
  - Sleep disorder [Recovering/Resolving]
  - Memory impairment [Recovering/Resolving]
  - Product substitution issue [Recovering/Resolving]
  - Drug ineffective [Unknown]

NARRATIVE: CASE EVENT DATE: 201502
